FAERS Safety Report 9008251 (Version 5)
Quarter: 2013Q3

REPORT INFORMATION
  Report Type: Spontaneous
  Country: JP (occurrence: None)
  Receive Date: 20121227
  Receipt Date: 20130805
  Transmission Date: 20140515
  Serious: Yes (Hospitalization, Other)
  Sender: FDA-Public Use
  Company Number: THQ2012A11181

PATIENT
  Age: 41 Year
  Sex: Male

DRUGS (12)
  1. TAKEPRON (LANSOPRAZOLE) [Suspect]
     Indication: PROPHYLAXIS AGAINST GASTROINTESTINAL ULCER
     Dosage: 15 MG (15 MG, 1 IN 1 D), ORAL
     Route: 048
     Dates: start: 20121130
  2. LEXAPRO [Suspect]
     Indication: DEPRESSION
     Dosage: 10 MG (10 MG, 1 IN 1 D), ORAL
     Route: 048
     Dates: end: 20121129
  3. LAMICTAL (LAMOTRIGINE) [Concomitant]
  4. LANDSEN (CLONAZEPAM) [Concomitant]
  5. RIVOTRIL (CLONAZEPAM) [Concomitant]
  6. PLAVIX (CLOPIDOGREL BISULFATE) [Concomitant]
  7. BAYASPIRIN (ACETYLSALICYLIC ACID) (ACETYLSALICYLIC ACID) [Concomitant]
  8. CRESTOR (ROSUVASTATIN CALCIUM) [Concomitant]
  9. NICORANDIS (NICORANDIL) [Concomitant]
  10. MAGNESIUM OXIDE [Concomitant]
  11. SOLITA (SODIUM LACTATE, POTASSIUM CHLORIDE, CALCIUM CHLORIDE DIHYDRATE) [Concomitant]
  12. HEPARIN SODIUM [Concomitant]

REACTIONS (13)
  - Ventricular fibrillation [None]
  - Torsade de pointes [None]
  - Cardiac failure [None]
  - Apathy [None]
  - Electrocardiogram R on T phenomenon [None]
  - Loss of consciousness [None]
  - Coronary artery occlusion [None]
  - Blood potassium abnormal [None]
  - Blood calcium decreased [None]
  - Drug interaction [None]
  - Acute myocardial infarction [None]
  - Extrasystoles [None]
  - Ventricular extrasystoles [None]
